FAERS Safety Report 24939581 (Version 2)
Quarter: 2025Q1

REPORT INFORMATION
  Report Type: Report from Study
  Country: EG (occurrence: EG)
  Receive Date: 20250206
  Receipt Date: 20250327
  Transmission Date: 20250408
  Serious: Yes (Death, Hospitalization)
  Sender: EMD SERONO INC
  Company Number: EG-Merck Healthcare KGaA-2025005117

PATIENT
  Age: 0 Hour
  Sex: Male

DRUGS (6)
  1. REBIF [Suspect]
     Active Substance: INTERFERON BETA-1A
     Indication: Multiple sclerosis
  2. REBIF [Suspect]
     Active Substance: INTERFERON BETA-1A
  3. IRON [Concomitant]
     Active Substance: IRON
     Indication: Product used for unknown indication
     Dates: start: 20211101, end: 20220517
  4. CALCIUM [Concomitant]
     Active Substance: CALCIUM
     Indication: Product used for unknown indication
     Dates: start: 20211101, end: 20220517
  5. FOLIC ACID [Concomitant]
     Active Substance: FOLIC ACID
     Indication: Product used for unknown indication
     Dates: start: 20211101, end: 20220517
  6. PROGESTERONE ABBOTT [Concomitant]
     Indication: Product used for unknown indication
     Dosage: FOR THE FIRST FOUR MONTHS
     Dates: start: 20211101, end: 20220301

REACTIONS (5)
  - Hydrocephalus [Fatal]
  - Meningitis [Fatal]
  - Premature baby [Recovered/Resolved]
  - Immature respiratory system [Unknown]
  - Foetal exposure during pregnancy [Recovered/Resolved]

NARRATIVE: CASE EVENT DATE: 20220517
